FAERS Safety Report 10565716 (Version 2)
Quarter: 2014Q4

REPORT INFORMATION
  Report Type: Spontaneous
  Country: US (occurrence: US)
  Receive Date: 20141105
  Receipt Date: 20141105
  Transmission Date: 20150529
  Serious: Yes (Hospitalization)
  Sender: FDA-Public Use
  Company Number: US-UNITED THERAPEUTICS-UNT-2014-009543

PATIENT
  Age: 63 Year
  Sex: Female
  Weight: 66.67 kg

DRUGS (2)
  1. COUMADIN [Concomitant]
     Active Substance: WARFARIN SODIUM
     Indication: PRODUCT USED FOR UNKNOWN INDICATION
  2. REMODULIN [Suspect]
     Active Substance: TREPROSTINIL
     Indication: PULMONARY ARTERIAL HYPERTENSION
     Dosage: 0.065 ?G/KG, CONTINUING
     Route: 058
     Dates: start: 20111008

REACTIONS (6)
  - Pulmonary arterial hypertension [Unknown]
  - Chronic kidney disease [Unknown]
  - Tachycardia [Unknown]
  - Dyspnoea exertional [Recovered/Resolved with Sequelae]
  - Mitral valve incompetence [Unknown]
  - Atrial fibrillation [Unknown]

NARRATIVE: CASE EVENT DATE: 20141016
